FAERS Safety Report 25598029 (Version 1)
Quarter: 2025Q3

REPORT INFORMATION
  Report Type: Spontaneous
  Country: EU (occurrence: EU)
  Receive Date: 20250723
  Receipt Date: 20250723
  Transmission Date: 20251020
  Serious: Yes (Other)
  Sender: TEVA
  Company Number: None

PATIENT
  Age: 53 Year
  Sex: Female

DRUGS (5)
  1. VINCRISTINE [Suspect]
     Active Substance: VINCRISTINE
     Indication: Diffuse large B-cell lymphoma stage IV
     Dosage: VINCRISTINE TEVA ITALIA*1 VIAL IV 2 ML 2 MG/ML: 1 FLC Q21
     Route: 042
     Dates: start: 20220511, end: 20220831
  2. PREDNISONE DOC GENERICI [Concomitant]
     Indication: Diffuse large B-cell lymphoma stage IV
     Route: 048
     Dates: start: 20220511, end: 20220831
  3. TRUXIMA [Suspect]
     Active Substance: RITUXIMAB-ABBS
     Indication: Diffuse large B-cell lymphoma stage IV
     Dosage: TRUXIMA*1 VIAL INFUS EV 500 MG 50 ML 10 MG/ML + TRUXIMA*2 VIALS INFUS EV 100 MG 10 ML 10 MG/ML: 6...
     Route: 042
     Dates: start: 20220518, end: 20221011
  4. DOXORUBICIN HYDROCHLORIDE [Suspect]
     Active Substance: DOXORUBICIN HYDROCHLORIDE
     Indication: Diffuse large B-cell lymphoma stage IV
     Dosage: ADRIBLASTIN*1 VIAL EV 50 MG 25 ML: 91 MG Q21
     Route: 042
     Dates: start: 20220511, end: 20220831
  5. CYCLOPHOSPHAMIDE [Suspect]
     Active Substance: CYCLOPHOSPHAMIDE
     Indication: Diffuse large B-cell lymphoma stage IV
     Dosage: ENDOXAN BAXTER*1 VIAL 1 G POWDER + ENDOXAN BAXTER*1 VIAL 500 MG POWDER: 1365 MG Q21
     Route: 042
     Dates: start: 20220511, end: 20220831

REACTIONS (1)
  - Cardiac failure chronic [Recovering/Resolving]

NARRATIVE: CASE EVENT DATE: 20230302
